FAERS Safety Report 6359644-2 (Version None)
Quarter: 2009Q3

REPORT INFORMATION
  Report Type: 
  Country: None (occurrence: None)
  Receive Date: 20090917
  Receipt Date: 20090910
  Transmission Date: 20100115
  Serious: No
  Sender: FDA-Public Use
  Company Number: US-SOLVAY-00209004381

PATIENT
  Sex: Female

DRUGS (2)
  1. ANDROGEL [Suspect]
     Indication: ACCIDENTAL EXPOSURE
     Dosage: DAILY DOSE: 5 GRAM(S)
     Route: 062
     Dates: start: 20061101
  2. ANDROGEL [Suspect]
     Dosage: DAILY DOSE: 7.5 GRAM(S)
     Route: 062

REACTIONS (3)
  - ACNE [None]
  - HIRSUTISM [None]
  - MENSTRUATION IRREGULAR [None]
